FAERS Safety Report 24816384 (Version 1)
Quarter: 2025Q1

REPORT INFORMATION
  Report Type: Spontaneous
  Country: CA (occurrence: CA)
  Receive Date: 20250107
  Receipt Date: 20250107
  Transmission Date: 20250408
  Serious: Yes (Hospitalization)
  Sender: BAUSCH AND LOMB
  Company Number: CA-BAUSCH-BL-2025-000199

PATIENT
  Age: 64 Year
  Sex: Male

DRUGS (2)
  1. RIFAXIMIN [Suspect]
     Active Substance: RIFAXIMIN
     Indication: Hepatic encephalopathy
     Dosage: 550 MG 1 TABLET BID
     Route: 048
     Dates: start: 20241003, end: 20241007
  2. RIFAXIMIN [Suspect]
     Active Substance: RIFAXIMIN
     Dosage: 550 MG 1 TABLET BID
     Route: 048
     Dates: start: 2024

REACTIONS (1)
  - Haemorrhage [Unknown]

NARRATIVE: CASE EVENT DATE: 20241001
